FAERS Safety Report 7962219-2 (Version None)
Quarter: 2011Q4

REPORT INFORMATION
  Report Type: 
  Country: None (occurrence: None)
  Receive Date: 20111207
  Receipt Date: 20111129
  Transmission Date: 20120403
  Serious: Yes (Other)
  Sender: FDA-Public Use
  Company Number: PHHY2011DE104657

PATIENT
  Sex: Female

DRUGS (1)
  1. MYFORTIC [Suspect]
     Indication: PEMPHIGUS
     Dosage: UNK
     Route: 048
     Dates: start: 20110801

REACTIONS (1)
  - TUMOUR MARKER INCREASED [None]
